FAERS Safety Report 7895852-7 (Version None)
Quarter: 2011Q4

REPORT INFORMATION
  Report Type: 
  Country: None (occurrence: None)
  Receive Date: 20111104
  Receipt Date: 20111104
  Transmission Date: 20120403
  Serious: Yes (Hospitalization)
  Sender: FDA-Public Use
  Company Number: None

PATIENT
  Sex: Male
  Weight: 77.5651 kg

DRUGS (1)
  1. PEMETREXED [Suspect]
     Indication: NON-SMALL CELL LUNG CANCER
     Dosage: 500MG/M2 Q3WEEKS IV
     Dates: start: 20110914, end: 20111005

REACTIONS (13)
  - ASTHENIA [None]
  - BLOOD SODIUM DECREASED [None]
  - BLOOD POTASSIUM INCREASED [None]
  - METABOLIC ENCEPHALOPATHY [None]
  - BLOOD MAGNESIUM DECREASED [None]
  - URINARY TRACT INFECTION [None]
  - FAILURE TO THRIVE [None]
  - WHITE BLOOD CELL COUNT DECREASED [None]
  - HAEMOGLOBIN DECREASED [None]
  - DYSPNOEA [None]
  - URINARY INCONTINENCE [None]
  - PLATELET COUNT DECREASED [None]
  - FALL [None]
